FAERS Safety Report 8092333-5 (Version None)
Quarter: 2012Q1

REPORT INFORMATION
  Report Type: 
  Country: None (occurrence: None)
  Receive Date: 20120128
  Receipt Date: 20110830
  Transmission Date: 20120608
  Serious: No
  Sender: FDA-Public Use
  Company Number: US-ABBOTT-11P-163-0849062-00

PATIENT
  Sex: Female
  Weight: 93.07 kg

DRUGS (13)
  1. LISINOPRIL [Concomitant]
     Indication: HYPERTENSION
  2. METHOTREXATE [Concomitant]
     Indication: RHEUMATOID ARTHRITIS
  3. LEUCOVORIN CALCIUM [Concomitant]
     Indication: STOMATITIS
  4. VICODIN [Concomitant]
     Indication: PAIN
  5. MULTI-VITAMINS [Concomitant]
     Indication: VITAMIN SUPPLEMENTATION
  6. CALCIUM [Concomitant]
     Indication: VITAMIN SUPPLEMENTATION
  7. LOPRESSOR [Concomitant]
     Indication: HYPERTENSION
  8. NITROGLYCERIN [Concomitant]
     Indication: ANGINA PECTORIS
  9. NORVASC [Concomitant]
     Indication: HYPERTENSION
  10. PLAVIX [Concomitant]
     Indication: SUPPLEMENTATION THERAPY
  11. LIPITOR [Concomitant]
     Indication: BLOOD CHOLESTEROL INCREASED
  12. ASPIRIN [Concomitant]
     Indication: PROPHYLAXIS
  13. HUMIRA [Suspect]
     Indication: RHEUMATOID ARTHRITIS

REACTIONS (5)
  - MUSCULAR WEAKNESS [None]
  - GAIT DISTURBANCE [None]
  - ARTHROPATHY [None]
  - MUSCLE SPASMS [None]
  - HYPOAESTHESIA [None]
